FAERS Safety Report 6143938-X (Version None)
Quarter: 2009Q2

REPORT INFORMATION
  Report Type: 
  Country: None (occurrence: None)
  Receive Date: 20090406
  Receipt Date: 20090324
  Transmission Date: 20091009
  Serious: Yes (Hospitalization)
  Sender: FDA-Public Use
  Company Number: NL-RANBAXY-2009RR-21149

PATIENT
  Age: 1 Day
  Sex: Female

DRUGS (5)
  1. LAMIVUDINE [Suspect]
     Indication: HIV INFECTION
     Route: 064
  2. NELFINAVIR [Suspect]
     Indication: HIV INFECTION
     Route: 064
  3. ZIDOVUDINE [Suspect]
     Indication: HIV INFECTION
     Route: 064
  4. LAMIVUDINE [Suspect]
     Indication: PROPHYLAXIS AGAINST HIV INFECTION
     Route: 042
  5. ZIDOVUDINE [Suspect]
     Indication: PROPHYLAXIS AGAINST HIV INFECTION
     Route: 042

REACTIONS (1)
  - NECROTISING COLITIS [None]
